FAERS Safety Report 6060379-4 (Version None)
Quarter: 2009Q1

REPORT INFORMATION
  Report Type: 
  Country: None (occurrence: None)
  Receive Date: 20090130
  Receipt Date: 20090130
  Transmission Date: 20090719
  Serious: No
  Sender: FDA-Public Use
  Company Number: None

PATIENT
  Age: 50 Year
  Sex: Female
  Weight: 68.0396 kg

DRUGS (2)
  1. WELLBUTRIN XL [Suspect]
     Indication: DEPRESSION
     Dosage: 300MG. DAILY PO
     Route: 048
     Dates: start: 20010601, end: 20070515
  2. WELLBUTRIN XL [Suspect]
     Indication: DEPRESSION
     Dosage: 300MG. DAILY PO
     Route: 048
     Dates: start: 20081015, end: 20090129

REACTIONS (1)
  - DEAFNESS NEUROSENSORY [None]
